FAERS Safety Report 9192255 (Version 2)
Quarter: 2013Q1

REPORT INFORMATION
  Report Type: Spontaneous
  Country: US (occurrence: US)
  Receive Date: 20130327
  Receipt Date: 20130329
  Transmission Date: 20140127
  Serious: No
  Sender: FDA-Public Use
  Company Number: US-009507513-1303USA011641

PATIENT
  Sex: Female
  Weight: 96.6 kg

DRUGS (6)
  1. NEXPLANON [Suspect]
     Dosage: 1 DF, UNK
     Route: 059
     Dates: start: 20130220
  2. LUNESTA [Concomitant]
  3. ADDERALL TABLETS [Concomitant]
  4. LAMICTAL [Concomitant]
  5. SAPHRIS [Concomitant]
  6. JUNEL [Concomitant]

REACTIONS (2)
  - Implant site bruising [Not Recovered/Not Resolved]
  - Application site pain [Not Recovered/Not Resolved]
